FAERS Safety Report 25839730 (Version 1)
Quarter: 2025Q3

REPORT INFORMATION
  Report Type: Spontaneous
  Country: US (occurrence: US)
  Receive Date: 20250924
  Receipt Date: 20250924
  Transmission Date: 20251020
  Serious: No
  Sender: TAKEDA
  Company Number: US-TAKEDA-2025TUS080364

PATIENT
  Age: 34 Year
  Sex: Female
  Weight: 56 kg

DRUGS (13)
  1. ENTYVIO [Suspect]
     Active Substance: VEDOLIZUMAB
     Indication: Crohn^s disease
     Dosage: 300 MILLIGRAM, Q6WEEKS
     Dates: start: 2016
  2. LORAZEPAM [Concomitant]
     Active Substance: LORAZEPAM
  3. SOLU-MEDROL [Concomitant]
     Active Substance: METHYLPREDNISOLONE SODIUM SUCCINATE
     Indication: Feeling hot
  4. SOLU-MEDROL [Concomitant]
     Active Substance: METHYLPREDNISOLONE SODIUM SUCCINATE
     Indication: Chest discomfort
  5. SOLU-MEDROL [Concomitant]
     Active Substance: METHYLPREDNISOLONE SODIUM SUCCINATE
     Indication: Dyspnoea
  6. LORATADINE [Concomitant]
     Active Substance: LORATADINE
     Indication: Premedication
  7. ZOFRAN [Concomitant]
     Active Substance: ONDANSETRON HYDROCHLORIDE
  8. LEVSIN [Concomitant]
     Active Substance: HYOSCYAMINE SULFATE
  9. VITAMIN B12 [Concomitant]
     Active Substance: CYANOCOBALAMIN
  10. TYLENOL [Concomitant]
     Active Substance: ACETAMINOPHEN
     Indication: Premedication
  11. PEPCID [Concomitant]
     Active Substance: FAMOTIDINE
     Indication: Feeling hot
  12. PEPCID [Concomitant]
     Active Substance: FAMOTIDINE
     Indication: Chest discomfort
  13. PEPCID [Concomitant]
     Active Substance: FAMOTIDINE
     Indication: Dyspnoea

REACTIONS (4)
  - Feeling hot [Recovered/Resolved]
  - Chest discomfort [Recovered/Resolved]
  - Dyspnoea [Recovered/Resolved]
  - Off label use [Unknown]
